FAERS Safety Report 21218378 (Version 3)
Quarter: 2022Q3

REPORT INFORMATION
  Report Type: Spontaneous
  Country: BR (occurrence: BR)
  Receive Date: 20220816
  Receipt Date: 20220825
  Transmission Date: 20221026
  Serious: Yes (Other)
  Sender: FDA-Public Use
  Company Number: BR-PFIZER INC-202201060098

PATIENT
  Age: 75 Year
  Sex: Male
  Weight: 120 kg

DRUGS (1)
  1. ALPRAZOLAM [Suspect]
     Active Substance: ALPRAZOLAM
     Dosage: 2 MG
     Dates: start: 1970

REACTIONS (6)
  - Drug dependence [Recovered/Resolved]
  - Fall [Unknown]
  - Femur fracture [Unknown]
  - Gait disturbance [Unknown]
  - Hypoacusis [Unknown]
  - Stress [Unknown]

NARRATIVE: CASE EVENT DATE: 20220601
